FAERS Safety Report 4533854-9 (Version None)
Quarter: 2004Q4

REPORT INFORMATION
  Report Type: 
  Country: None (occurrence: None)
  Receive Date: 20041214
  Receipt Date: 20041006
  Transmission Date: 20050328
  Serious: No
  Sender: FDA-Public Use
  Company Number: USA041080440

PATIENT
  Age: 78 Year
  Sex: Male
  Weight: 82 kg

DRUGS (2)
  1. CIALIS [Suspect]
     Dates: start: 20040923
  2. VIAGRA [Concomitant]

REACTIONS (4)
  - DIFFICULTY IN WALKING [None]
  - INSOMNIA [None]
  - JOINT STIFFNESS [None]
  - PAIN IN EXTREMITY [None]
